FAERS Safety Report 24626158 (Version 1)
Quarter: 2024Q4

REPORT INFORMATION
  Report Type: Spontaneous
  Country: GR (occurrence: GR)
  Receive Date: 20241115
  Receipt Date: 20241115
  Transmission Date: 20250115
  Serious: Yes (Hospitalization, Other)
  Sender: REGENERON
  Company Number: GR-REGENERON PHARMACEUTICALS, INC.-2024-154247

PATIENT
  Age: 68 Year
  Sex: Male

DRUGS (3)
  1. LIBTAYO [Suspect]
     Active Substance: CEMIPLIMAB-RWLC
     Indication: Non-small cell lung cancer
     Dosage: 350 MG, Q3W
     Route: 065
  2. CARBOPLATIN [Concomitant]
     Active Substance: CARBOPLATIN
     Indication: Non-small cell lung cancer
     Dosage: UNK
     Route: 065
  3. PEMETREXED [Concomitant]
     Active Substance: PEMETREXED
     Indication: Non-small cell lung cancer

REACTIONS (3)
  - Malignant neoplasm oligoprogression [Not Recovered/Not Resolved]
  - Metastases to bone [Unknown]
  - Disease progression [Unknown]
